FAERS Safety Report 9319261 (Version 3)
Quarter: 2013Q3

REPORT INFORMATION
  Report Type: Spontaneous
  Country: IT (occurrence: IT)
  Receive Date: 20130530
  Receipt Date: 20130712
  Transmission Date: 20140515
  Serious: Yes (Other)
  Sender: FDA-Public Use
  Company Number: IT-VERTEX PHARMACEUTICALS INC-2013-006553

PATIENT
  Age: 47 Year
  Sex: Male
  Weight: 97 kg

DRUGS (4)
  1. INCIVO [Suspect]
     Indication: CHRONIC HEPATITIS C
     Dosage: 375 MG, QD
     Route: 048
     Dates: start: 20130317
  2. PEGASYS [Concomitant]
     Indication: CHRONIC HEPATITIS C
     Dosage: DOSAGE FORM: SOLUTION FOR INJECTION
     Route: 058
     Dates: start: 20130317, end: 20130523
  3. COPEGUS [Concomitant]
     Indication: CHRONIC HEPATITIS C
     Dosage: DOSAGE FORM: TABLETS
     Route: 048
     Dates: start: 20130317, end: 20130523
  4. OLPREZIDE [Concomitant]
     Indication: HYPERTENSION
     Dosage: DOSAGE FORM: TABLETS
     Route: 048

REACTIONS (1)
  - Rash [Recovered/Resolved]
